FAERS Safety Report 5032292-2 (Version None)
Quarter: 2006Q2

REPORT INFORMATION
  Report Type: 
  Country: None (occurrence: None)
  Receive Date: 20060621
  Receipt Date: 20060621
  Transmission Date: 20061013
  Serious: No
  Sender: FDA-Public Use
  Company Number: None

PATIENT
  Sex: Female
  Weight: 77.3 kg

DRUGS (7)
  1. ARALAST [Suspect]
     Indication: ALPHA-1 ANTI-TRYPSIN DEFICIENCY
     Dosage: 60MG/KG = 4480 MG WEEKLY IV
     Route: 042
     Dates: start: 20060616
  2. SPIRIVA [Concomitant]
  3. QVAR 40 [Concomitant]
  4. COMBIVENT [Concomitant]
  5. HRT [Concomitant]
  6. FOSAMAX [Concomitant]
  7. LASIX [Concomitant]

REACTIONS (4)
  - COUGH [None]
  - FATIGUE [None]
  - FEELING HOT [None]
  - MALAISE [None]
